FAERS Safety Report 4925863-2 (Version None)
Quarter: 2006Q1

REPORT INFORMATION
  Report Type: 
  Country: None (occurrence: None)
  Receive Date: 20060228
  Receipt Date: 20050404
  Transmission Date: 20060701
  Serious: No
  Sender: FDA-Public Use
  Company Number: US-GLAXOSMITHKLINE-A0552578A

PATIENT
  Age: 59 Year
  Sex: Female

DRUGS (5)
  1. LAMICTAL [Suspect]
     Indication: BIPOLAR DISORDER
     Dosage: 25MG PER DAY
     Route: 048
     Dates: start: 20050301
  2. ZETIA [Concomitant]
  3. LITHIUM [Concomitant]
  4. EFFEXOR [Concomitant]
  5. KLONOPIN [Concomitant]

REACTIONS (4)
  - FATIGUE [None]
  - HEADACHE [None]
  - INSOMNIA [None]
  - TREMOR [None]
